FAERS Safety Report 4394569-3 (Version None)
Quarter: 2004Q3

REPORT INFORMATION
  Report Type: 
  Country: None (occurrence: None)
  Receive Date: 20040712
  Receipt Date: 20040611
  Transmission Date: 20050211
  Serious: Yes (Hospitalization)
  Sender: FDA-Public Use
  Company Number: US-ROCHE-371052

PATIENT
  Age: 69 Year
  Sex: Male
  Weight: 97.1 kg

DRUGS (1)
  1. CELLCEPT [Suspect]
     Indication: MYASTHENIA GRAVIS
     Route: 048
     Dates: start: 20020808, end: 20040609

REACTIONS (3)
  - CEREBRAL HAEMORRHAGE [None]
  - ENCEPHALITIS [None]
  - HERPES ZOSTER [None]
